FAERS Safety Report 7286361-7 (Version None)
Quarter: 2011Q1

REPORT INFORMATION
  Report Type: 
  Country: None (occurrence: None)
  Receive Date: 20110126
  Receipt Date: 20110117
  Transmission Date: 20110831
  Serious: Yes (Death, Hospitalization)
  Sender: FDA-Public Use
  Company Number: 2009AC000295

PATIENT
  Age: 67 Year
  Sex: Female

DRUGS (21)
  1. WELLBUTRIN [Concomitant]
  2. DIGOXIN [Suspect]
     Dosage: 0.125 MG;QD;PO
     Route: 048
     Dates: start: 20030901, end: 20080601
  3. ACIDOPHILUS [Concomitant]
  4. CYMBALTA [Concomitant]
  5. ULTRAM [Concomitant]
  6. LEVOPLED [Concomitant]
  7. DIFLUCAN [Concomitant]
  8. WELLBUTRIN [Concomitant]
  9. AMBIEN [Concomitant]
  10. ADVIL LIQUI-GELS [Concomitant]
  11. ALDACTONE [Concomitant]
  12. COREG [Concomitant]
  13. RAMIPRIL [Concomitant]
  14. MIRALAX [Concomitant]
  15. ALTACE [Concomitant]
  16. SANCTURA [Concomitant]
  17. DETROL [Concomitant]
  18. ATIVAN [Concomitant]
  19. IMODIUM [Concomitant]
  20. EFFEXOR [Concomitant]
  21. LASIX [Concomitant]

REACTIONS (43)
  - RENAL FAILURE ACUTE [None]
  - DYSPNOEA [None]
  - URINARY TRACT INFECTION [None]
  - ASTHENIA [None]
  - DEPRESSION [None]
  - BLOOD CALCIUM DECREASED [None]
  - HYPERTENSION [None]
  - CARDIAC ARREST [None]
  - LEFT VENTRICULAR DYSFUNCTION [None]
  - PLATELET COUNT INCREASED [None]
  - PAIN IN EXTREMITY [None]
  - CONDITION AGGRAVATED [None]
  - FAECAL INCONTINENCE [None]
  - CATHETER SITE DISCHARGE [None]
  - UROSEPSIS [None]
  - RENAL FAILURE CHRONIC [None]
  - BLOOD POTASSIUM INCREASED [None]
  - SEPSIS [None]
  - BLOOD CREATININE DECREASED [None]
  - DECREASED APPETITE [None]
  - LETHARGY [None]
  - POLYP [None]
  - MALAISE [None]
  - URETHRAL DISORDER [None]
  - APNOEA [None]
  - SUDDEN CARDIAC DEATH [None]
  - DIARRHOEA [None]
  - HYPOPHAGIA [None]
  - DEHYDRATION [None]
  - HYPOTENSION [None]
  - GAMMA-GLUTAMYLTRANSFERASE INCREASED [None]
  - FATIGUE [None]
  - CONFUSIONAL STATE [None]
  - DIVERTICULUM [None]
  - SOMNOLENCE [None]
  - BLOOD GLUCOSE INCREASED [None]
  - CONSTIPATION [None]
  - MITRAL VALVE INCOMPETENCE [None]
  - BLOOD PHOSPHORUS DECREASED [None]
  - FLUID INTAKE REDUCED [None]
  - SKIN DISORDER [None]
  - CARDIOACTIVE DRUG LEVEL INCREASED [None]
  - CATHETER SITE ERYTHEMA [None]
